FAERS Safety Report 5713415-6 (Version None)
Quarter: 2008Q2

REPORT INFORMATION
  Report Type: 
  Country: None (occurrence: None)
  Receive Date: 20080422
  Receipt Date: 20080414
  Transmission Date: 20081010
  Serious: Yes (Hospitalization)
  Sender: FDA-Public Use
  Company Number: ES-PFIZER INC-2008032420

PATIENT
  Age: 37 Year
  Sex: Female

DRUGS (1)
  1. FELDENE [Suspect]
     Indication: THERMAL BURN
     Route: 048
     Dates: start: 20070915, end: 20070928

REACTIONS (2)
  - GASTRIC ULCER [None]
  - PERITONITIS [None]
